FAERS Safety Report 22078087 (Version 3)
Quarter: 2023Q2

REPORT INFORMATION
  Report Type: Spontaneous
  Country: CA (occurrence: CA)
  Receive Date: 20230309
  Receipt Date: 20230406
  Transmission Date: 20230721
  Serious: Yes (Hospitalization, Other)
  Sender: FDA-Public Use
  Company Number: CA-PFIZER INC-202300070440

PATIENT
  Age: 49 Year
  Sex: Male

DRUGS (3)
  1. XELJANZ [Suspect]
     Active Substance: TOFACITINIB CITRATE
     Indication: Colitis ulcerative
     Dosage: 10 MG, 3X/DAY, FOR 9 DOSES THEN 10 MG BID ONGOING
     Route: 048
     Dates: start: 20230215, end: 20230305
  2. METHYLPREDNISOLONE [Concomitant]
     Active Substance: METHYLPREDNISOLONE
     Indication: Inflammation
     Route: 042
  3. PREDNISONE [Concomitant]
     Active Substance: PREDNISONE
     Indication: Inflammation
     Route: 048

REACTIONS (3)
  - Drug ineffective [Recovering/Resolving]
  - Large intestine operation [Unknown]
  - Off label use [Unknown]

NARRATIVE: CASE EVENT DATE: 20230305
